FAERS Safety Report 18125791 (Version 4)
Quarter: 2020Q4

REPORT INFORMATION
  Report Type: Report from Study
  Country: AR (occurrence: AR)
  Receive Date: 20200807
  Receipt Date: 20201103
  Transmission Date: 20210113
  Serious: Yes (Death, Hospitalization, Other)
  Sender: FDA-Public Use
  Company Number: AR-ALXN-A202010824AA

PATIENT
  Age: 60 Year
  Sex: Male
  Weight: 105 kg

DRUGS (4)
  1. SOLIRIS [Suspect]
     Active Substance: ECULIZUMAB
     Dosage: UNK
     Route: 065
  2. SOLIRIS [Suspect]
     Active Substance: ECULIZUMAB
     Indication: PAROXYSMAL NOCTURNAL HAEMOGLOBINURIA
     Dosage: 900 MG, EVERY 15 DAYS
     Route: 042
     Dates: start: 2012
  3. SOLIRIS [Suspect]
     Active Substance: ECULIZUMAB
     Dosage: 900 MG, Q2W
     Route: 042
     Dates: start: 20170906
  4. SOLIRIS [Suspect]
     Active Substance: ECULIZUMAB
     Dosage: 900 MG, Q2W
     Route: 042
     Dates: start: 20170906

REACTIONS (14)
  - Abdominal pain [Unknown]
  - Tremor [Unknown]
  - Dehydration [Unknown]
  - Vomiting [Unknown]
  - Acute kidney injury [Fatal]
  - Pyrexia [Recovered/Resolved]
  - Haemodynamic instability [Unknown]
  - Haemolysis [Fatal]
  - Cardiac arrest [Fatal]
  - Chills [Unknown]
  - Stupor [Unknown]
  - Counterfeit product administered [Unknown]
  - Confusional state [Unknown]
  - Diarrhoea [Recovered/Resolved]

NARRATIVE: CASE EVENT DATE: 202007
